FAERS Safety Report 13715255 (Version 7)
Quarter: 2018Q4

REPORT INFORMATION
  Report Type: Report from Study
  Country: DE (occurrence: DE)
  Receive Date: 20170704
  Receipt Date: 20181220
  Transmission Date: 20190204
  Serious: Yes (Hospitalization, Other)
  Sender: FDA-Public Use
  Company Number: DE-JNJFOC-20170615567

PATIENT
  Age: 86 Year
  Sex: Female
  Weight: 65.7 kg

DRUGS (59)
  1. BISOPROLOL [Concomitant]
     Active Substance: BISOPROLOL
     Route: 048
     Dates: end: 20170601
  2. BISOPROLOL [Concomitant]
     Active Substance: BISOPROLOL
     Route: 048
     Dates: start: 20170624
  3. CEFAZOLIN [Concomitant]
     Active Substance: CEFAZOLIN
     Route: 042
     Dates: start: 20170603, end: 20170603
  4. HEPARIN [Concomitant]
     Active Substance: HEPARIN SODIUM
     Route: 042
     Dates: start: 20170602, end: 20170602
  5. HEPARIN [Concomitant]
     Active Substance: HEPARIN SODIUM
     Route: 042
     Dates: start: 20170606, end: 20170606
  6. PROTAMINE [Concomitant]
     Active Substance: PROTAMINE
     Route: 042
     Dates: start: 20170602, end: 20170602
  7. APIXABAN [Concomitant]
     Active Substance: APIXABAN
     Route: 048
     Dates: start: 20170715, end: 20170717
  8. DIGITOXIN [Concomitant]
     Active Substance: DIGITOXIN
     Route: 042
     Dates: start: 20170630, end: 20170712
  9. RAMIPRIL. [Concomitant]
     Active Substance: RAMIPRIL
     Route: 048
     Dates: start: 20170603, end: 20170610
  10. RAMIPRIL. [Concomitant]
     Active Substance: RAMIPRIL
     Route: 048
     Dates: start: 20170611, end: 20170626
  11. HEPARIN [Concomitant]
     Active Substance: HEPARIN SODIUM
     Route: 042
     Dates: start: 20170621, end: 20170714
  12. TOREM [Concomitant]
     Active Substance: TORSEMIDE
     Route: 048
     Dates: start: 20170603
  13. IRENAT [Concomitant]
     Active Substance: SODIUM PERCHLORATE
     Route: 048
     Dates: start: 20170530, end: 20170612
  14. CEFAZOLIN [Concomitant]
     Active Substance: CEFAZOLIN
     Route: 042
     Dates: start: 20170604, end: 20170604
  15. HEPARIN [Concomitant]
     Active Substance: HEPARIN SODIUM
     Route: 042
     Dates: start: 20170603, end: 20170603
  16. HEPARIN [Concomitant]
     Active Substance: HEPARIN SODIUM
     Route: 042
     Dates: start: 20170719, end: 20170721
  17. POTASSIUM [Concomitant]
     Active Substance: POTASSIUM
     Route: 042
     Dates: start: 20170602, end: 20170602
  18. NOVALGIN (METAMIZOLE SODIUM) [Concomitant]
     Active Substance: METAMIZOLE SODIUM
     Route: 042
     Dates: start: 20170602, end: 20170602
  19. ZIENAM [Concomitant]
     Active Substance: CILASTATIN SODIUM\IMIPENEM
     Route: 042
     Dates: start: 20170623, end: 20170706
  20. VORICONAZOLE. [Concomitant]
     Active Substance: VORICONAZOLE
     Route: 042
     Dates: start: 20170626, end: 20170706
  21. RIVAROXABAN [Suspect]
     Active Substance: RIVAROXABAN
     Indication: THROMBOSIS PROPHYLAXIS
     Route: 048
     Dates: start: 20170607, end: 20170618
  22. ACETYLSALICYLIC ACID [Suspect]
     Active Substance: ASPIRIN
     Indication: THROMBOSIS PROPHYLAXIS
     Route: 048
     Dates: start: 20170607, end: 20170618
  23. BISOPROLOL [Concomitant]
     Active Substance: BISOPROLOL
     Route: 048
     Dates: start: 20170604, end: 20170610
  24. BISOPROLOL [Concomitant]
     Active Substance: BISOPROLOL
     Route: 048
     Dates: start: 20170629, end: 20170702
  25. RAMIPRIL. [Concomitant]
     Active Substance: RAMIPRIL
     Route: 048
     Dates: start: 20170701, end: 20170708
  26. METHIZOL [Concomitant]
     Active Substance: METHIMAZOLE
     Route: 048
     Dates: end: 20170601
  27. CLOPIDOGREL [Concomitant]
     Active Substance: CLOPIDOGREL BISULFATE
     Route: 048
     Dates: start: 20170602, end: 20170603
  28. DIPIDOLOR [Concomitant]
     Active Substance: PIRITRAMIDE
     Route: 048
     Dates: start: 20170602, end: 20170602
  29. JONOSTERIL [Concomitant]
     Route: 042
     Dates: start: 20170615, end: 20170703
  30. HEPARIN [Concomitant]
     Active Substance: HEPARIN SODIUM
     Route: 042
     Dates: start: 20170604, end: 20170605
  31. ACETYLSALICYLIC ACID [Suspect]
     Active Substance: ASPIRIN
     Indication: THROMBOSIS PROPHYLAXIS
     Route: 048
     Dates: end: 20170601
  32. SIMVASTATIN. [Concomitant]
     Active Substance: SIMVASTATIN
     Route: 048
     Dates: end: 20170606
  33. AMLODIPINE [Concomitant]
     Active Substance: AMLODIPINE BESYLATE
     Route: 048
     Dates: start: 20170702, end: 20170708
  34. TOREM [Concomitant]
     Active Substance: TORSEMIDE
     Route: 048
     Dates: end: 20170601
  35. METHIZOL [Concomitant]
     Active Substance: METHIMAZOLE
     Route: 048
     Dates: start: 20170603
  36. JONOSTERIL [Concomitant]
     Dosage: 500 ML, ONCE
     Route: 042
     Dates: start: 20170602, end: 20170602
  37. FALITHROM [Concomitant]
     Active Substance: PHENPROCOUMON
     Route: 048
     Dates: start: 20170720
  38. ACETYLSALICYLIC ACID [Suspect]
     Active Substance: ASPIRIN
     Indication: AORTIC VALVE REPLACEMENT
     Route: 048
     Dates: start: 20170603, end: 20170606
  39. ACETYLSALICYLIC ACID [Suspect]
     Active Substance: ASPIRIN
     Indication: AORTIC VALVE REPLACEMENT
     Route: 048
     Dates: start: 20170607, end: 20170618
  40. AMLODIPINE [Concomitant]
     Active Substance: AMLODIPINE BESYLATE
     Route: 048
     Dates: start: 20170603, end: 20170616
  41. CLOPIDOGREL [Concomitant]
     Active Substance: CLOPIDOGREL BISULFATE
     Route: 048
     Dates: start: 20170623
  42. CEFAZOLIN [Concomitant]
     Active Substance: CEFAZOLIN
     Route: 042
     Dates: start: 20160602, end: 20170602
  43. JONOSTERIL [Concomitant]
     Route: 042
     Dates: start: 20170712, end: 20170719
  44. PREDNISOLONE. [Concomitant]
     Active Substance: PREDNISOLONE
     Route: 042
     Dates: start: 20170623, end: 20170627
  45. CEFTAZIDIM SANDOZ [Concomitant]
     Route: 042
     Dates: start: 20170626, end: 20170628
  46. ACETYLSALICYLIC ACID [Suspect]
     Active Substance: ASPIRIN
     Indication: AORTIC VALVE REPLACEMENT
     Route: 048
     Dates: end: 20170601
  47. AMLODIPINE [Concomitant]
     Active Substance: AMLODIPINE BESYLATE
     Route: 048
     Dates: end: 20170601
  48. CLOPIDOGREL [Concomitant]
     Active Substance: CLOPIDOGREL BISULFATE
     Route: 048
     Dates: start: 20170601, end: 20170601
  49. CEFAZOLIN [Concomitant]
     Active Substance: CEFAZOLIN
     Route: 042
     Dates: start: 20170605, end: 20170605
  50. CEFAZOLIN [Concomitant]
     Active Substance: CEFAZOLIN
     Route: 042
  51. REMIFENTANIL [Concomitant]
     Active Substance: REMIFENTANIL
     Route: 042
     Dates: start: 20170602, end: 20170602
  52. DIPIDOLOR [Concomitant]
     Active Substance: PIRITRAMIDE
     Route: 058
     Dates: start: 20170623, end: 20170623
  53. RIVAROXABAN [Suspect]
     Active Substance: RIVAROXABAN
     Indication: AORTIC VALVE REPLACEMENT
     Route: 048
     Dates: start: 20170607, end: 20170618
  54. ACETYLSALICYLIC ACID [Suspect]
     Active Substance: ASPIRIN
     Indication: THROMBOSIS PROPHYLAXIS
     Route: 048
     Dates: start: 20170603, end: 20170606
  55. BISOPROLOL [Concomitant]
     Active Substance: BISOPROLOL
     Route: 048
     Dates: start: 20170611, end: 20170620
  56. BISOPROLOL [Concomitant]
     Active Substance: BISOPROLOL
     Route: 048
     Dates: start: 20170703
  57. RAMIPRIL. [Concomitant]
     Active Substance: RAMIPRIL
     Route: 048
     Dates: end: 20170601
  58. DEXAMETHASONE. [Concomitant]
     Active Substance: DEXAMETHASONE
     Route: 042
     Dates: start: 20170602, end: 20170602
  59. DIPIDOLOR [Concomitant]
     Active Substance: PIRITRAMIDE
     Route: 058
     Dates: start: 20170628, end: 20170703

REACTIONS (5)
  - Sepsis [Recovered/Resolved]
  - Pleural effusion [Recovered/Resolved]
  - Pemphigus [Recovered/Resolved]
  - Circulatory collapse [Recovered/Resolved]
  - Mouth haemorrhage [Recovered/Resolved]

NARRATIVE: CASE EVENT DATE: 20170611
